FAERS Safety Report 8354410-0 (Version None)
Quarter: 2012Q2

REPORT INFORMATION
  Report Type: 
  Country: None (occurrence: None)
  Receive Date: 20120511
  Receipt Date: 20120501
  Transmission Date: 20120825
  Serious: Yes (Other)
  Sender: FDA-Public Use
  Company Number: US-JNJFOC-20120502206

PATIENT
  Sex: Female
  Weight: 92.53 kg

DRUGS (1)
  1. REMICADE [Suspect]
     Indication: COLITIS ULCERATIVE
     Route: 042
     Dates: start: 20110101

REACTIONS (4)
  - HYPERSENSITIVITY [None]
  - SINUSITIS [None]
  - ARTHRALGIA [None]
  - CARPAL TUNNEL SYNDROME [None]
